FAERS Safety Report 7794966-X (Version None)
Quarter: 2011Q4

REPORT INFORMATION
  Report Type: 
  Country: None (occurrence: None)
  Receive Date: 20111003
  Receipt Date: 20111003
  Transmission Date: 20120403
  Serious: Yes (Hospitalization)
  Sender: FDA-Public Use
  Company Number: None

PATIENT
  Age: 31 Year
  Sex: Male
  Weight: 83.6 kg

DRUGS (1)
  1. SERTRALINE HYDROCHLORIDE [Suspect]
     Indication: DEPRESSION
     Dosage: 25 MG EVERY DAY PO
     Route: 048
     Dates: start: 20110913, end: 20110926

REACTIONS (2)
  - SUICIDAL IDEATION [None]
  - INCORRECT DOSE ADMINISTERED [None]
